FAERS Safety Report 6354530-6 (Version None)
Quarter: 2009Q3

REPORT INFORMATION
  Report Type: 
  Country: None (occurrence: None)
  Receive Date: 20090914
  Receipt Date: 20090910
  Transmission Date: 20100115
  Serious: Yes (Death, Other)
  Sender: FDA-Public Use
  Company Number: JP-AVENTIS-200912555JP

PATIENT
  Age: 71 Year
  Sex: Male

DRUGS (2)
  1. TAXOTERE [Suspect]
     Route: 041
     Dates: start: 20090825
  2. PREDNISOLONE [Concomitant]

REACTIONS (2)
  - FEBRILE NEUTROPENIA [None]
  - INTERSTITIAL LUNG DISEASE [None]
